FAERS Safety Report 24587609 (Version 1)
Quarter: 2024Q4

REPORT INFORMATION
  Report Type: Spontaneous
  Country: US (occurrence: US)
  Receive Date: 20241107
  Receipt Date: 20241107
  Transmission Date: 20250115
  Serious: No
  Sender: BRISTOL-MYERS SQUIBB COMPANY
  Company Number: US-BRISTOL-MYERS SQUIBB COMPANY-2024-171428

PATIENT
  Sex: Female

DRUGS (1)
  1. REBLOZYL [Suspect]
     Active Substance: LUSPATERCEPT-AAMT
     Indication: Myelodysplastic syndrome with ringed sideroblasts
     Dosage: ROUTE WAS REPORTED AS INJECTION
     Dates: start: 202308

REACTIONS (6)
  - Product dose omission issue [Unknown]
  - Therapeutic response decreased [Unknown]
  - Malaise [Unknown]
  - Fatigue [Unknown]
  - Nausea [Unknown]
  - Full blood count increased [Unknown]
